FAERS Safety Report 13913738 (Version 1)
Quarter: 2017Q3

REPORT INFORMATION
  Report Type: Spontaneous
  Country: DE (occurrence: DE)
  Receive Date: 20170829
  Receipt Date: 20170829
  Transmission Date: 20171127
  Serious: Yes (Congenital Anomaly, Other)
  Sender: FDA-Public Use
  Company Number: DE-MYLANLABS-2017M1052432

PATIENT

DRUGS (11)
  1. LEVETIRACETAM MYLAN [Suspect]
     Active Substance: LEVETIRACETAM
     Indication: EPILEPSY
     Dosage: 1000 [MG/D ]
     Route: 064
     Dates: start: 20160414, end: 20170122
  2. OXYTOCIN. [Concomitant]
     Active Substance: OXYTOCIN
     Indication: LABOUR INDUCTION
     Route: 064
     Dates: start: 20170122, end: 20170122
  3. SERTRALINE [Suspect]
     Active Substance: SERTRALINE HYDROCHLORIDE
     Indication: DEPRESSION
     Dosage: 50 [MG/D ]
     Route: 064
     Dates: start: 20160414, end: 20170122
  4. INIMUR MYKO [Concomitant]
     Indication: VULVOVAGINAL MYCOTIC INFECTION
     Route: 064
  5. VITAMIN D [Concomitant]
     Active Substance: CHOLECALCIFEROL
     Indication: VITAMIN D DEFICIENCY
     Dosage: 1000 [IE/D ]
     Route: 064
  6. WICK INHALIERSTIFT N [Concomitant]
     Indication: VIRAL UPPER RESPIRATORY TRACT INFECTION
     Route: 064
     Dates: start: 20160609, end: 20160609
  7. BALDRIAN DISPERT [Concomitant]
     Active Substance: HERBALS
     Indication: SLEEP DISORDER
     Dosage: 45 [MG/D ]
     Route: 064
  8. BEPANTHEN [Concomitant]
     Active Substance: DEXPANTHENOL
     Indication: NASAL DISCOMFORT
     Route: 064
  9. FEMIBION [Concomitant]
     Active Substance: VITAMINS
     Indication: PROPHYLAXIS OF NEURAL TUBE DEFECT
     Dosage: 0.8 [MG/D (BIS 0.4) ]
     Route: 064
     Dates: start: 20160414, end: 20160706
  10. NYSTATIN. [Concomitant]
     Active Substance: NYSTATIN
     Indication: VULVOVAGINAL MYCOTIC INFECTION
     Route: 064
  11. EFEROX [Concomitant]
     Active Substance: LEVOTHYROXINE SODIUM
     Indication: HYPOTHYROIDISM
     Dosage: 112 [?G/D ]
     Route: 064
     Dates: start: 20160414, end: 20170122

REACTIONS (2)
  - Foetal exposure during pregnancy [Recovered/Resolved]
  - Cerebral haemorrhage neonatal [Unknown]

NARRATIVE: CASE EVENT DATE: 20170122
